FAERS Safety Report 15126570 (Version 1)
Quarter: 2018Q3

REPORT INFORMATION
  Report Type: Spontaneous
  Country: AU (occurrence: AU)
  Receive Date: 20180710
  Receipt Date: 20180710
  Transmission Date: 20181010
  Serious: Yes (Other)
  Sender: FDA-Public Use
  Company Number: AU-BAYER-2018-119506

PATIENT
  Sex: Female

DRUGS (1)
  1. MIRENA [Suspect]
     Active Substance: LEVONORGESTREL
     Indication: GENITAL HAEMORRHAGE
     Dosage: 20 MCG/24HR, CONT
     Route: 015
     Dates: start: 20180306

REACTIONS (4)
  - Off label use of device [None]
  - Abdominal discomfort [None]
  - Device use issue [None]
  - Hemianaesthesia [Not Recovered/Not Resolved]

NARRATIVE: CASE EVENT DATE: 20180306
